FAERS Safety Report 9897554 (Version 1)
Quarter: 2014Q1

REPORT INFORMATION
  Report Type: Spontaneous
  Country: US (occurrence: US)
  Receive Date: 20140214
  Receipt Date: 20140214
  Transmission Date: 20141002
  Serious: Yes (Hospitalization)
  Sender: FDA-Public Use
  Company Number: US-ELI_LILLY_AND_COMPANY-US201402003895

PATIENT
  Age: 77 Year
  Sex: Male
  Weight: 103.86 kg

DRUGS (18)
  1. CYMBALTA [Suspect]
     Indication: NEUROPATHY PERIPHERAL
     Dosage: 20 MG, QD
     Dates: start: 201305
  2. CALCIUM + VITAMIN D [Concomitant]
     Indication: SUPPLEMENTATION THERAPY
     Dosage: 200 MG, QD
     Dates: start: 200903
  3. CALCIUM MAGNESIUM [Concomitant]
     Indication: SUPPLEMENTATION THERAPY
     Dosage: UNK UNK, BID
     Dates: start: 201108
  4. MEFORMIN [Concomitant]
     Indication: DIABETES MELLITUS
     Dosage: 1000 MG, BID
     Dates: start: 200509
  5. TAMSULOSIN [Concomitant]
     Indication: URINARY RETENTION
     Dosage: 0.4 MG, QD
     Dates: start: 200508
  6. ASPIRIN [Concomitant]
     Indication: CARDIOVASCULAR EVENT PROPHYLAXIS
     Dosage: 81 MG, QD
     Dates: start: 200405
  7. COLACE [Concomitant]
     Indication: CONSTIPATION
     Dosage: 100 MG, BID
     Dates: start: 201112
  8. MULTIVITAMIN [Concomitant]
     Indication: SUPPLEMENTATION THERAPY
     Dosage: UNK
     Dates: start: 199604
  9. GABAPENTIN [Concomitant]
     Indication: NEUROPATHY PERIPHERAL
     Dosage: 800 MG, QID
     Dates: start: 201305
  10. CETIRIZINE [Concomitant]
     Indication: SEASONAL ALLERGY
     Dosage: 10 MG, BID
     Dates: start: 201104
  11. AMBIEN [Concomitant]
     Indication: INSOMNIA
     Dosage: 10 MG, PRN
     Dates: start: 201001
  12. FUROSEMIDE [Concomitant]
     Indication: FLUID RETENTION
     Dosage: 40 MG, PRN
     Dates: start: 200304
  13. MECLIZINE [Concomitant]
     Indication: DIZZINESS
     Dosage: 25 MG, PRN
     Dates: start: 201207
  14. LEVOTHYROXINE [Concomitant]
     Indication: HYPOTHYROIDISM
     Dosage: 100 UG, QD
     Dates: start: 201309
  15. LISINOPRIL [Concomitant]
     Indication: HYPERTENSION
     Dosage: 10 MG, QD
     Dates: start: 20131028
  16. DURAGESIC [Concomitant]
     Indication: BONE PAIN
     Dosage: 12 UG, OTHER
     Dates: start: 20131030
  17. NORCO [Concomitant]
     Indication: BONE PAIN
     Dosage: UNK, PRN
     Dates: start: 20131030
  18. ZANTAC [Concomitant]
     Indication: GASTROOESOPHAGEAL REFLUX DISEASE
     Dosage: UNK
     Dates: start: 20131219

REACTIONS (3)
  - Hypophosphataemia [Not Recovered/Not Resolved]
  - Hyponatraemia [Not Recovered/Not Resolved]
  - Conjunctivitis [Not Recovered/Not Resolved]
